FAERS Safety Report 7215707-0 (Version None)
Quarter: 2011Q1

REPORT INFORMATION
  Report Type: 
  Country: None (occurrence: None)
  Receive Date: 20110107
  Receipt Date: 20101228
  Transmission Date: 20110831
  Serious: Yes (Other)
  Sender: FDA-Public Use
  Company Number: US-MYLANLABS-2010S1022526

PATIENT
  Age: 52 Year
  Sex: Female

DRUGS (6)
  1. AMBIEN [Concomitant]
  2. CLONAZEPAM [Concomitant]
     Dosage: TAKEN FOR OVER 10 YEARS
  3. WELLBUTRIN [Concomitant]
     Dosage: TAKEN FOR OVER 5 YEARS
  4. ESTRADIOL [Suspect]
     Indication: HORMONE REPLACEMENT THERAPY
     Dosage: CHANGED QW
     Route: 062
     Dates: start: 20101101
  5. CHOLESTEROL MEDICATION [Concomitant]
  6. LIBRIUM [Concomitant]
     Indication: MEMORY IMPAIRMENT

REACTIONS (10)
  - ANXIETY [None]
  - MOOD SWINGS [None]
  - CONFUSIONAL STATE [None]
  - ASTHENIA [None]
  - HORMONE LEVEL ABNORMAL [None]
  - DRUG INEFFECTIVE [None]
  - WRONG TECHNIQUE IN DRUG USAGE PROCESS [None]
  - MEMORY IMPAIRMENT [None]
  - DISTURBANCE IN ATTENTION [None]
  - APPLICATION SITE ERYTHEMA [None]
